FAERS Safety Report 10427044 (Version 5)
Quarter: 2015Q3

REPORT INFORMATION
  Report Type: Report from Study
  Country: BE (occurrence: BE)
  Receive Date: 20140903
  Receipt Date: 20150714
  Transmission Date: 20151125
  Serious: Yes (Death)
  Sender: FDA-Public Use
  Company Number: PHHO2014BE011591

PATIENT
  Age: 37 Year
  Sex: Male
  Weight: 75 kg

DRUGS (9)
  1. CELLCEPT [Suspect]
     Active Substance: MYCOPHENOLATE MOFETIL\MYCOPHENOLATE MOFETIL HYDROCHLORIDE
     Dosage: 1000 MG, UNK
     Route: 065
     Dates: start: 20140828
  2. SIMULECT [Suspect]
     Active Substance: BASILIXIMAB
     Indication: RENAL TRANSPLANT
     Dosage: 20 MG, UNK
     Route: 065
     Dates: start: 20140819, end: 20140819
  3. PROGRAF [Concomitant]
     Active Substance: TACROLIMUS\TACROLIMUS ANHYDROUS
     Indication: RENAL TRANSPLANT
     Dosage: 0 MG, UNK
     Route: 065
     Dates: start: 20140819, end: 20140819
  4. EUSAPRIM FORTE [Concomitant]
     Active Substance: SULFAMETHOXAZOLE\TRIMETHOPRIM
     Indication: INFECTION
     Dosage: 400 MG, UNK
     Route: 065
     Dates: start: 20140822
  5. NO TREATMENT RECEIVED [Suspect]
     Active Substance: UNSPECIFIED INGREDIENT
     Indication: RENAL TRANSPLANT
     Dosage: NO TREATMENT
     Route: 065
  6. CELLCEPT [Suspect]
     Active Substance: MYCOPHENOLATE MOFETIL\MYCOPHENOLATE MOFETIL HYDROCHLORIDE
     Indication: RENAL TRANSPLANT
     Dosage: 2000 MG, UNK
     Route: 065
     Dates: start: 20140819, end: 20140826
  7. DAFALGAN [Concomitant]
     Active Substance: ACETAMINOPHEN
     Indication: PAIN
     Dosage: 4 G, UNK
     Route: 065
     Dates: start: 20140822
  8. MEDROL [Suspect]
     Active Substance: METHYLPREDNISOLONE
     Indication: PRODUCT USED FOR UNKNOWN INDICATION
     Route: 065
  9. SOLU-MEDROL [Suspect]
     Active Substance: METHYLPREDNISOLONE SODIUM SUCCINATE
     Indication: RENAL TRANSPLANT
     Dosage: 40 MG, UNK
     Route: 065
     Dates: start: 20140819

REACTIONS (6)
  - Coma [Fatal]
  - Pupils unequal [Fatal]
  - Cerebral ischaemia [Fatal]
  - Hypertension [Fatal]
  - Cardiac arrest [Fatal]
  - Acute respiratory distress syndrome [Fatal]

NARRATIVE: CASE EVENT DATE: 20140819
